FAERS Safety Report 9651465 (Version 1)
Quarter: 2013Q4

REPORT INFORMATION
  Report Type: Spontaneous
  Country: US (occurrence: None)
  Receive Date: 20131028
  Receipt Date: 20131028
  Transmission Date: 20140711
  Serious: Yes (Hospitalization)
  Sender: FDA-Public Use
  Company Number: None

PATIENT
  Age: 81 Year
  Sex: Male
  Weight: 94.7 kg

DRUGS (1)
  1. TAFINLAR 75 MG CAPSULES GLAXOSMITHKLINE [Suspect]
     Indication: MALIGNANT MELANOMA
     Dosage: 150MG (2 CAPSULES) 2 TIMES A DAY BY MOUTH ON AN EMPTY STOMACH
     Dates: start: 20131018, end: 20131020

REACTIONS (5)
  - Asthenia [None]
  - Pancreatitis [None]
  - Platelet count decreased [None]
  - Haemoglobin decreased [None]
  - Haematocrit decreased [None]
